FAERS Safety Report 21493433 (Version 2)
Quarter: 2023Q1

REPORT INFORMATION
  Report Type: Other
  Country: JP (occurrence: JP)
  Receive Date: 20221021
  Receipt Date: 20230301
  Transmission Date: 20230418
  Serious: Yes (Life-Threatening, Hospitalization)
  Sender: FDA-Public Use
  Company Number: JP-CHUGAI-2022041495

PATIENT
  Age: 43 Year
  Sex: Female
  Weight: 75.7 kg

DRUGS (4)
  1. AVASTIN [Suspect]
     Active Substance: BEVACIZUMAB
     Indication: Ovarian cancer
     Route: 041
     Dates: start: 20180123, end: 20180731
  2. AVASTIN [Suspect]
     Active Substance: BEVACIZUMAB
     Route: 041
     Dates: start: 20180823, end: 20181120
  3. PACLITAXEL [Concomitant]
     Active Substance: PACLITAXEL
     Indication: Ovarian cancer
     Route: 041
  4. CARBOPLATIN [Concomitant]
     Active Substance: CARBOPLATIN
     Indication: Ovarian cancer
     Route: 041

REACTIONS (1)
  - Angina unstable [Recovering/Resolving]

NARRATIVE: CASE EVENT DATE: 20181218
